FAERS Safety Report 10063200 (Version 2)
Quarter: 2014Q2

REPORT INFORMATION
  Report Type: Report from Study
  Country: DE (occurrence: DE)
  Receive Date: 20140407
  Receipt Date: 20140407
  Transmission Date: 20141212
  Serious: Yes (Hospitalization)
  Sender: FDA-Public Use
  Company Number: DE-UCBSA-530#6#2007-00038

PATIENT
  Age: 72 Year
  Sex: Male
  Weight: 125 kg

DRUGS (16)
  1. NEUPRO [Suspect]
     Indication: PARKINSON^S DISEASE
     Route: 062
     Dates: start: 20070402, end: 20070405
  2. NEUPRO [Suspect]
     Indication: PARKINSON^S DISEASE
     Route: 062
     Dates: start: 20070406, end: 20070420
  3. AMANTADINE [Suspect]
     Indication: PARKINSON^S DISEASE
     Route: 048
     Dates: start: 20070113, end: 20070119
  4. AMANTADINE [Suspect]
     Indication: PARKINSON^S DISEASE
     Route: 048
     Dates: start: 20070120, end: 20070126
  5. AMANTADINE [Suspect]
     Indication: PARKINSON^S DISEASE
     Dosage: OTHER  2-1-0
     Route: 048
     Dates: start: 20070127, end: 2007
  6. LEVODOPA/CARBIDOPA [Suspect]
     Indication: PARKINSON^S DISEASE
     Dosage: UNKNOWN DOSE
     Route: 048
     Dates: start: 2006, end: 2006
  7. LEVODOPA/CARBIDOPA [Suspect]
     Indication: PARKINSON^S DISEASE
     Dosage: 100/25 AS GIVEN DOSE, FREQUENCY - OTHER 1/2-0-0
     Route: 048
     Dates: start: 20070423, end: 20070425
  8. LEVODOPA/CARBIDOPA [Suspect]
     Indication: PARKINSON^S DISEASE
     Dosage: 100/25 AS GIVEN DOSE, FREQUENCY - OTHER 1/2-1/2-0
     Route: 048
     Dates: start: 20070426, end: 20070428
  9. LEVODOPA/CARBIDOPA [Suspect]
     Indication: PARKINSON^S DISEASE
     Dosage: 100/25 AS GIVEN DOSE, FREQUENCY - OTHER  3 X 1/2
     Route: 048
     Dates: start: 20070429, end: 20070703
  10. SELEGILINE [Suspect]
     Indication: PARKINSON^S DISEASE
     Route: 048
     Dates: start: 20070710, end: 2007
  11. ISDN RET. [Concomitant]
     Indication: CORONARY ARTERY DISEASE
  12. SIMVASTATIN [Concomitant]
     Indication: HYPERLIPIDAEMIA
  13. INSULIN HUMAN [Concomitant]
     Indication: DIABETES MELLITUS
     Dosage: DEPENDS ON WHAT HE EATS OTHER IE, FORMULATION - SOLUTION
     Route: 058
     Dates: start: 1987
  14. ASS [Concomitant]
     Indication: CARDIOVASCULAR EVENT PROPHYLAXIS
  15. ENALAGAMMA [Concomitant]
     Indication: CORONARY ARTERY DISEASE
  16. TORASEMID [Concomitant]
     Indication: CORONARY ARTERY DISEASE
     Dosage: FREQUENCY - OTHER 1.25-0-0

REACTIONS (7)
  - Hyperglycaemia [Recovered/Resolved]
  - Blood glucose increased [Recovered/Resolved]
  - Renal failure [Unknown]
  - Blood glucose increased [Recovered/Resolved]
  - Urinary tract infection [Recovered/Resolved]
  - Sleep attacks [Recovered/Resolved]
  - Hallucination [Recovered/Resolved]
